FAERS Safety Report 12231221 (Version 7)
Quarter: 2018Q2

REPORT INFORMATION
  Report Type: Spontaneous
  Country: US (occurrence: US)
  Receive Date: 20160401
  Receipt Date: 20180511
  Transmission Date: 20180711
  Serious: Yes (Hospitalization)
  Sender: FDA-Public Use
  Company Number: US-JNJFOC-20160322709

PATIENT
  Sex: Female
  Weight: 49.9 kg

DRUGS (13)
  1. DURAGESIC [Suspect]
     Active Substance: FENTANYL
     Indication: PAIN
     Route: 062
  2. DURAGESIC [Suspect]
     Active Substance: FENTANYL
     Indication: PAIN
     Route: 062
     Dates: start: 200506, end: 201703
  3. DURAGESIC [Suspect]
     Active Substance: FENTANYL
     Indication: PAIN
     Dosage: 25 MCG/HR OR 50 MCG/HR EVERY OTHER DAY.
     Route: 062
  4. DURAGESIC [Suspect]
     Active Substance: FENTANYL
     Indication: PAIN
     Dosage: 25 MCG/HR OR 50 MCG/HR EVERY OTHER DAY.
     Route: 062
  5. DURAGESIC [Suspect]
     Active Substance: FENTANYL
     Indication: PAIN
     Route: 062
     Dates: start: 2017
  6. NUVIGIL [Concomitant]
     Active Substance: ARMODAFINIL
     Indication: POOR QUALITY SLEEP
     Route: 065
  7. PROZAC [Concomitant]
     Active Substance: FLUOXETINE HYDROCHLORIDE
     Indication: POOR QUALITY SLEEP
     Route: 065
  8. DURAGESIC [Suspect]
     Active Substance: FENTANYL
     Indication: PAIN
     Dosage: EVERY OTHER DAY
     Route: 062
     Dates: start: 2004, end: 2005
  9. FENTANYL MYLAN [Suspect]
     Active Substance: FENTANYL
     Indication: PAIN
     Route: 062
     Dates: start: 2004
  10. DURAGESIC [Suspect]
     Active Substance: FENTANYL
     Indication: PAIN
     Route: 062
     Dates: start: 1997, end: 1997
  11. DURAGESIC [Suspect]
     Active Substance: FENTANYL
     Indication: PAIN
     Route: 062
     Dates: start: 1998
  12. DURAGESIC [Suspect]
     Active Substance: FENTANYL
     Indication: PAIN
     Route: 062
     Dates: start: 201703
  13. DURAGESIC [Suspect]
     Active Substance: FENTANYL
     Indication: PAIN
     Route: 062
     Dates: start: 2017, end: 2017

REACTIONS (12)
  - Inappropriate schedule of drug administration [Unknown]
  - Therapeutic response increased [Unknown]
  - Feeling abnormal [Unknown]
  - Amnesia [Not Recovered/Not Resolved]
  - Off label use [Unknown]
  - Fall [Recovered/Resolved]
  - Pain [Not Recovered/Not Resolved]
  - Therapeutic response decreased [Unknown]
  - Overdose [Unknown]
  - Tremor [Unknown]
  - Dry skin [Unknown]
  - Night sweats [Unknown]

NARRATIVE: CASE EVENT DATE: 1997
